FAERS Safety Report 11539433 (Version 6)
Quarter: 2016Q2

REPORT INFORMATION
  Report Type: Report from Study
  Country: GB (occurrence: GB)
  Receive Date: 20150923
  Receipt Date: 20160512
  Transmission Date: 20160815
  Serious: Yes (Life-Threatening, Other)
  Sender: FDA-Public Use
  Company Number: GB-ROCHE-1373968

PATIENT
  Age: 67 Year
  Sex: Female
  Weight: 61.5 kg

DRUGS (1)
  1. BEVACIZUMAB [Suspect]
     Active Substance: BEVACIZUMAB
     Indication: COLORECTAL CANCER METASTATIC
     Dosage: DATE OF LAST DOSE PRIOR TO SAE: 14/MAR/2013: DEEP VEIN THROMBOSIS?DATE OF LAST DOSE PRIOR TO SAE: 13
     Route: 042
     Dates: start: 20121219

REACTIONS (3)
  - Venous thrombosis [Recovered/Resolved with Sequelae]
  - Pulmonary embolism [Recovered/Resolved with Sequelae]
  - Deep vein thrombosis [Recovered/Resolved with Sequelae]

NARRATIVE: CASE EVENT DATE: 20130315
